FAERS Safety Report 7380304-3 (Version None)
Quarter: 2011Q1

REPORT INFORMATION
  Report Type: 
  Country: None (occurrence: None)
  Receive Date: 20110329
  Receipt Date: 20110317
  Transmission Date: 20110831
  Serious: Yes (Other)
  Sender: FDA-Public Use
  Company Number: JP-ELI_LILLY_AND_COMPANY-JP201103002630

PATIENT
  Sex: Female
  Weight: 36 kg

DRUGS (6)
  1. DEPAS [Concomitant]
     Indication: ANXIETY
     Dosage: 0.5 MG, BID
     Route: 048
     Dates: start: 20100610
  2. DIAZEPAM [Concomitant]
     Indication: ANXIETY
     Dosage: 5 MG, TID
     Route: 048
     Dates: start: 20091017
  3. LENDORMIN [Concomitant]
     Indication: INSOMNIA
     Dosage: 0.25 MG, QD
     Route: 048
     Dates: start: 20101031
  4. MYSLEE [Concomitant]
     Indication: INSOMNIA
     Dosage: 5 MG, DAILY (1/D)
     Route: 048
     Dates: start: 20101013
  5. CYMBALTA [Suspect]
     Indication: DEPRESSION
     Dosage: 20 MG, DAILY (1/D)
     Route: 048
     Dates: start: 20110216, end: 20110225
  6. MAGMITT [Concomitant]
     Indication: CONSTIPATION
     Dosage: 330 MG, TID
     Route: 048
     Dates: start: 20101106

REACTIONS (1)
  - WHITE BLOOD CELL COUNT DECREASED [None]
